FAERS Safety Report 5836846-2 (Version None)
Quarter: 2008Q3

REPORT INFORMATION
  Report Type: 
  Country: None (occurrence: None)
  Receive Date: 20080807
  Receipt Date: 20080731
  Transmission Date: 20090109
  Serious: Yes (Hospitalization)
  Sender: FDA-Public Use
  Company Number: B0522187A

PATIENT
  Age: 92 Year
  Sex: Female

DRUGS (9)
  1. DEROXAT [Suspect]
     Dosage: 20MG PER DAY
     Route: 048
     Dates: end: 20080412
  2. PLAVIX [Suspect]
     Indication: DRUG USE FOR UNKNOWN INDICATION
     Dosage: 75MG PER DAY
     Route: 048
     Dates: end: 20080412
  3. HEMIGOXINE [Concomitant]
     Dosage: .125MG ALTERNATE DAYS
     Route: 048
     Dates: end: 20080412
  4. LASIX [Concomitant]
     Dosage: 40MG TWICE PER DAY
     Route: 065
  5. CALCIUM CARBONATE + VITAMIN D [Concomitant]
     Route: 048
     Dates: end: 20080412
  6. DOLIPRANE [Concomitant]
     Dosage: 500MG SIX TIMES PER DAY
     Route: 065
  7. SYMBICORT [Concomitant]
     Dosage: 1PUFF TWICE PER DAY
     Route: 065
  8. ATACAND [Concomitant]
     Route: 048
     Dates: end: 20080412
  9. FORLAX [Concomitant]
     Dosage: 10G TWICE PER DAY
     Route: 065

REACTIONS (12)
  - AGITATION [None]
  - DISORIENTATION [None]
  - FALL [None]
  - GAIT DISTURBANCE [None]
  - HAEMARTHROSIS [None]
  - LOSS OF CONSCIOUSNESS [None]
  - MONOPARESIS [None]
  - MYOCLONUS [None]
  - NERVOUS SYSTEM DISORDER [None]
  - SOMNOLENCE [None]
  - SUBDURAL HAEMATOMA [None]
  - WOUND [None]
